FAERS Safety Report 8767280 (Version 1)
Quarter: 2012Q4

REPORT INFORMATION
  Report Type: 
  Country: GB (occurrence: GB)
  Receive Date: 20120904
  Receipt Date: 20120904
  Transmission Date: 20130627
  Serious: Yes (Hospitalization)
  Sender: FDA-Public Use
  Company Number: GB-GLAXOSMITHKLINE-B0826918A

PATIENT
  Age: 23 Year
  Sex: Male

DRUGS (2)
  1. ACYCLOVIR [Suspect]
     Indication: ENCEPHALITIS
     Dosage: 10MGK Three times per day
     Route: 042
  2. CEFTRIAXONE [Suspect]
     Indication: ENCEPHALITIS
     Dosage: 2G Four times per day
     Route: 042

REACTIONS (3)
  - Renal failure acute [Recovered/Resolved]
  - Fatigue [Unknown]
  - Diplopia [Unknown]
